FAERS Safety Report 10176573 (Version 1)
Quarter: 2014Q2

REPORT INFORMATION
  Report Type: Spontaneous
  Country: US (occurrence: US)
  Receive Date: 20140516
  Receipt Date: 20140516
  Transmission Date: 20141212
  Serious: Yes (Other)
  Sender: FDA-Public Use
  Company Number: US-BAYER-2014-070912

PATIENT
  Age: 19 Year
  Sex: Female

DRUGS (2)
  1. MIRENA [Suspect]
     Indication: CONTRACEPTION
     Dosage: 20 MCG/24HR, CONT
     Route: 015
     Dates: start: 2012, end: 2013
  2. MIRENA [Suspect]
     Indication: CONTRACEPTION
     Dosage: 20 MCG/24HR, CONT
     Route: 015
     Dates: start: 201404

REACTIONS (7)
  - Dyspareunia [None]
  - Abdominal pain [None]
  - Amenorrhoea [None]
  - Post procedural haemorrhage [Recovered/Resolved]
  - Dyspareunia [None]
  - Coital bleeding [None]
  - Pelvic pain [Recovered/Resolved]
